FAERS Safety Report 4874878-1 (Version None)
Quarter: 2006Q1

REPORT INFORMATION
  Report Type: 
  Country: None (occurrence: None)
  Receive Date: 20060105
  Receipt Date: 20051223
  Transmission Date: 20060701
  Serious: Yes (Hospitalization, Other)
  Sender: FDA-Public Use
  Company Number: 2005133392

PATIENT
  Age: 78 Year
  Sex: Female
  Weight: 77.1115 kg

DRUGS (4)
  1. CELEBREX [Suspect]
     Indication: OSTEOARTHRITIS
     Dosage: 400 MG (200 MG, 2 IN 1 D), ORAL
     Route: 048
     Dates: start: 20050901, end: 20050901
  2. FOSAMAX [Concomitant]
  3. CALCIUM (CALCIUM) [Concomitant]
  4. DARVOCET [Concomitant]

REACTIONS (7)
  - ASTHENIA [None]
  - DIFFICULTY IN WALKING [None]
  - FATIGUE [None]
  - INFLUENZA [None]
  - LOSS OF CONSCIOUSNESS [None]
  - NERVE COMPRESSION [None]
  - PYREXIA [None]
